FAERS Safety Report 12556455 (Version 1)
Quarter: 2016Q3

REPORT INFORMATION
  Report Type: Spontaneous
  Country: US (occurrence: US)
  Receive Date: 20160714
  Receipt Date: 20160714
  Transmission Date: 20161109
  Serious: No
  Sender: FDA-Public Use
  Company Number: US-TEVA-655049USA

PATIENT

DRUGS (1)
  1. ZECUITY [Suspect]
     Active Substance: SUMATRIPTAN SUCCINATE
     Dosage: 6.5MG/4HR
     Route: 062
     Dates: start: 20160420

REACTIONS (2)
  - Product leakage [Unknown]
  - Application site urticaria [Unknown]

NARRATIVE: CASE EVENT DATE: 20160420
